FAERS Safety Report 9324028 (Version 1)
Quarter: 2013Q2

REPORT INFORMATION
  Report Type: Spontaneous
  Country: ES (occurrence: ES)
  Receive Date: 20130603
  Receipt Date: 20130603
  Transmission Date: 20140414
  Serious: Yes (Hospitalization)
  Sender: FDA-Public Use
  Company Number: ES-MILLENNIUM PHARMACEUTICALS, INC.-2013-04069

PATIENT
  Sex: 0

DRUGS (16)
  1. VELCADE [Suspect]
     Indication: PLASMA CELL MYELOMA
     Dosage: 1.3 MG/M2, UNK
     Route: 042
     Dates: start: 20110726, end: 20110904
  2. VELCADE [Suspect]
     Dosage: UNK
     Route: 042
     Dates: start: 20111212, end: 20120101
  3. VELCADE [Suspect]
     Dosage: UNK
     Route: 042
     Dates: start: 20120602
  4. MELPHALAN [Suspect]
     Indication: PLASMA CELL MYELOMA
     Dosage: 9 MG/M2, UNK
     Route: 048
     Dates: start: 20110726, end: 20110904
  5. MELPHALAN [Suspect]
     Dosage: UNK
     Route: 048
     Dates: start: 20111212, end: 20120122
  6. MELPHALAN [Suspect]
     Dosage: UNK
     Route: 048
     Dates: start: 20120602
  7. PREDNISONE [Suspect]
     Indication: PLASMA CELL MYELOMA
     Dosage: 60 MG, UNK
     Route: 048
     Dates: start: 20110726
  8. PREDNISONE [Suspect]
     Dosage: UNK
     Route: 048
     Dates: start: 20111212, end: 20120122
  9. PREDNISONE [Suspect]
     Dosage: 30 UNK, UNK
     Route: 048
     Dates: start: 20120206
  10. ACYCLOVIR                          /00587301/ [Concomitant]
     Indication: PLASMA CELL MYELOMA
     Dosage: 400 MG, UNK
     Route: 048
     Dates: start: 20110726
  11. CALCIUM [Concomitant]
     Indication: PLASMA CELL MYELOMA
     Dosage: UNK
     Dates: start: 20110726
  12. OMEPRAZOLE [Concomitant]
     Indication: PLASMA CELL MYELOMA
     Dosage: 20 MG, UNK
     Route: 048
     Dates: start: 20110726
  13. INSULIN [Concomitant]
     Indication: DIABETES MELLITUS
  14. ZYLORIC                            /00003301/ [Concomitant]
     Indication: PRODUCT USED FOR UNKNOWN INDICATION
     Dosage: 300 MG, UNK
     Route: 048
     Dates: start: 20110726
  15. ASPIRINE [Concomitant]
     Indication: THROMBOSIS PROPHYLAXIS
  16. LEVOFLOXACIN [Concomitant]
     Dosage: UNK
     Dates: end: 20120115

REACTIONS (2)
  - Oesophageal candidiasis [Recovered/Resolved]
  - Respiratory tract infection [Recovered/Resolved]
